FAERS Safety Report 20685771 (Version 1)
Quarter: 2022Q2

REPORT INFORMATION
  Report Type: Spontaneous
  Country: US (occurrence: US)
  Receive Date: 20220407
  Receipt Date: 20220407
  Transmission Date: 20220721
  Serious: No
  Sender: FDA-Public Use
  Company Number: US-PFIZER INC-2020401578

PATIENT
  Age: 87 Year
  Sex: Female

DRUGS (2)
  1. IBRANCE [Suspect]
     Active Substance: PALBOCICLIB
     Indication: Breast cancer female
     Dosage: 75 MG, CYCLIC (ONCE DAILY (QD) X 21 DAYS Q 28 DAYS)
     Dates: start: 20180107
  2. IBRANCE [Suspect]
     Active Substance: PALBOCICLIB
     Dosage: 75 MG
     Dates: start: 20200703

REACTIONS (2)
  - Product dose omission issue [Recovered/Resolved]
  - Urinary tract infection [Recovered/Resolved]
